FAERS Safety Report 8175124-6 (Version None)
Quarter: 2012Q1

REPORT INFORMATION
  Report Type: 
  Country: None (occurrence: None)
  Receive Date: 20120229
  Receipt Date: 20120223
  Transmission Date: 20120608
  Serious: Yes (Death)
  Sender: FDA-Public Use
  Company Number: PHHY2012UA012065

PATIENT
  Sex: Female

DRUGS (1)
  1. DESFERAL [Suspect]
     Dosage: UNK UKN, UNK
     Dates: start: 20120127

REACTIONS (10)
  - HAEMOLYTIC ANAEMIA [None]
  - HYPOXIC-ISCHAEMIC ENCEPHALOPATHY [None]
  - METHAEMOGLOBINAEMIA [None]
  - CARDIOMYOPATHY [None]
  - CARDIOVASCULAR INSUFFICIENCY [None]
  - RESPIRATORY FAILURE [None]
  - COMA [None]
  - RENAL FAILURE ACUTE [None]
  - HEPATITIS [None]
  - PNEUMONITIS CHEMICAL [None]
